FAERS Safety Report 17550613 (Version 2)
Quarter: 2020Q1

REPORT INFORMATION
  Report Type: Spontaneous
  Country: JP (occurrence: JP)
  Receive Date: 20200317
  Receipt Date: 20200327
  Transmission Date: 20200409
  Serious: Yes (Other)
  Sender: FDA-Public Use
  Company Number: JP-TAKEDA-2020TJP005801

PATIENT
  Age: 6 Decade
  Sex: Male

DRUGS (2)
  1. BAYASPIRIN [Concomitant]
     Active Substance: ASPIRIN
     Dosage: UNK, DOSAGE IS UNKNOWN
     Route: 065
  2. TAKELDA COMBINATION TABLETS [Suspect]
     Active Substance: ASPIRIN\LANSOPRAZOLE
     Indication: PROPHYLAXIS AGAINST GASTROINTESTINAL ULCER
     Dosage: UNK, 1 DOSAGE FORM = 100MG ASPIRIN + 15MG LANSOPRAZOLEDOSAGE IS UNKNOWN
     Route: 048
     Dates: end: 202002

REACTIONS (1)
  - Duodenal ulcer [Not Recovered/Not Resolved]

NARRATIVE: CASE EVENT DATE: 202002
